FAERS Safety Report 9095131 (Version 2)
Quarter: 2013Q1

REPORT INFORMATION
  Report Type: Spontaneous
  Country: IE (occurrence: IE)
  Receive Date: 20130201
  Receipt Date: 20130301
  Transmission Date: 20140127
  Serious: Yes (Life-Threatening, Hospitalization, Disabling)
  Sender: FDA-Public Use
  Company Number: IE-ABBOTT-13P-229-1043265-00

PATIENT
  Age: 30 None
  Sex: Male

DRUGS (5)
  1. HUMIRA [Suspect]
     Indication: COLITIS ULCERATIVE
     Route: 058
     Dates: start: 20121017, end: 20130113
  2. IMURAN [Concomitant]
     Indication: COLITIS ULCERATIVE
     Route: 048
     Dates: start: 201206, end: 201301
  3. PREDNISOLONE [Concomitant]
     Indication: COLITIS ULCERATIVE
     Route: 048
     Dates: start: 201212, end: 201301
  4. MEZEVANT [Concomitant]
     Indication: COLITIS ULCERATIVE
     Route: 048
     Dates: start: 201202, end: 201301
  5. DELTACORTIL [Concomitant]
     Indication: COLITIS ULCERATIVE
     Dosage: TAPERING DOSE FROM 30MG
     Route: 048
     Dates: start: 20121211

REACTIONS (3)
  - Superior sagittal sinus thrombosis [Recovering/Resolving]
  - Haemorrhagic cerebral infarction [Recovering/Resolving]
  - Confusional state [Recovering/Resolving]
